FAERS Safety Report 9506102 (Version 1)
Quarter: 2013Q1

REPORT INFORMATION
  Report Type: Spontaneous
  Country: US (occurrence: None)
  Receive Date: 20130305
  Receipt Date: 20130305
  Transmission Date: 20140127
  Serious: No
  Sender: FDA-Public Use
  Company Number: 1000039561

PATIENT
  Age: 67 Year
  Sex: Female

DRUGS (5)
  1. DALIRESP (ROFLUMILAST) (500 MICROGRAM, TABLETS) [Suspect]
     Indication: CHRONIC OBSTRUCTIVE PULMONARY DISEASE
     Dosage: (500 MCG, 1 IN 1 D), ORAL
     Route: 048
     Dates: start: 201206
  2. PREDNISONE (PREDNISONE) (PREDNISONE) [Concomitant]
  3. SPIRIVA (TIOTROPIUM BROMIDE) (TIOTROPIUM BROMIDE) [Concomitant]
  4. ALBUTEROL (ALBUTEROL) (ALBUTEROL) [Concomitant]
  5. CLARITIN (LORATADINE) (LORATADINE) [Concomitant]

REACTIONS (5)
  - Nausea [None]
  - Vomiting [None]
  - Headache [None]
  - Insomnia [None]
  - Weight decreased [None]
